FAERS Safety Report 5125846-6 (Version None)
Quarter: 2006Q3

REPORT INFORMATION
  Report Type: 
  Country: None (occurrence: None)
  Receive Date: 20060818
  Receipt Date: 20060503
  Transmission Date: 20061208
  Serious: No
  Sender: FDA-Public Use
  Company Number: SUS1-2006-00471

PATIENT
  Age: 48 Year
  Sex: Female
  Weight: 115.6 kg

DRUGS (11)
  1. FOSRENOL [Suspect]
     Dosage: 2 TABS AFTER MEAL 3-4 MEALS/DAY
     Dates: start: 20050501
  2. SULAR [Concomitant]
  3. LESCOL /01224502/ (FLUVASTATIN SODIUM) [Concomitant]
  4. SENSIPAR (CINACALCET HYDROCHLORIDE) [Concomitant]
  5. NOVOLIN 70/30 (INSULIN HUMAN INJECTION, ISOPHANE, INSULIN HUMAN) [Concomitant]
  6. COZAAR [Concomitant]
  7. COREG [Concomitant]
  8. COLCHICINE (COLCHICINE) [Concomitant]
  9. PROTONIX /01263201/ (PANTOPRAZOLE) [Concomitant]
  10. Z-PAK (AZITHROMYCIN) [Concomitant]
  11. SINGULAIR /01362601/ (MONTELUKAST) [Concomitant]

REACTIONS (4)
  - OCULAR HYPERAEMIA [None]
  - PRESCRIBED OVERDOSE [None]
  - PRURITUS GENERALISED [None]
  - RASH [None]
